FAERS Safety Report 9643217 (Version 2)
Quarter: 2014Q1

REPORT INFORMATION
  Report Type: Spontaneous
  Country: BR (occurrence: BR)
  Receive Date: 20131024
  Receipt Date: 20140219
  Transmission Date: 20141002
  Serious: Yes (Other)
  Sender: FDA-Public Use
  Company Number: BR-ABBVIE-13P-020-1160752-00

PATIENT
  Age: 19 Year
  Sex: Female
  Weight: 48 kg

DRUGS (3)
  1. DEPAKENE [Suspect]
     Indication: CONVULSION
     Dosage: IN THE MORNING AND IN THE AFTERNOON
     Route: 048
  2. MULTIVITAMINS W/MINERALS [Concomitant]
     Indication: VITAMIN SUPPLEMENTATION
     Route: 048
     Dates: start: 201303
  3. MULTIVITAMINS W/MINERALS [Concomitant]
     Indication: ANAEMIA

REACTIONS (3)
  - Petit mal epilepsy [Recovered/Resolved]
  - Drug ineffective [Unknown]
  - Anaemia [Recovered/Resolved]
